FAERS Safety Report 25146217 (Version 1)
Quarter: 2025Q2

REPORT INFORMATION
  Report Type: Spontaneous
  Country: US (occurrence: US)
  Receive Date: 20250401
  Receipt Date: 20250401
  Transmission Date: 20250717
  Serious: No
  Sender: ELI LILLY AND CO
  Company Number: US-ELI_LILLY_AND_COMPANY-US202503021543

PATIENT
  Age: 12 Year
  Sex: Female
  Weight: 25 kg

DRUGS (1)
  1. TALTZ [Suspect]
     Active Substance: IXEKIZUMAB
     Indication: Psoriasis
     Dosage: 20 MG, MONTHLY (1/M)
     Route: 058

REACTIONS (1)
  - Product prescribing issue [Unknown]
